FAERS Safety Report 5672935-3 (Version None)
Quarter: 2008Q1

REPORT INFORMATION
  Report Type: 
  Country: None (occurrence: None)
  Receive Date: 20080319
  Receipt Date: 20071213
  Transmission Date: 20080703
  Serious: No
  Sender: FDA-Public Use
  Company Number: US-ASTRAZENECA-2007UW28428

PATIENT
  Age: 46 Year
  Sex: Female
  Weight: 63.5 kg

DRUGS (5)
  1. SYMBICORT [Suspect]
     Indication: ASTHMA
     Dosage: 80/4.5 UG -ONE PUFF BID
     Route: 055
     Dates: start: 20071207
  2. THYROID TAB [Concomitant]
  3. SYMLIN [Concomitant]
  4. PREDNISONE [Concomitant]
     Dosage: 20 MG SAT., SUN. AND MONDAY
     Route: 048
  5. PREDNISONE [Concomitant]
     Dosage: 10 MG TUES. AND WED. AND THEN FOR 5 DAYS
     Route: 048

REACTIONS (2)
  - ASTHMA [None]
  - DYSPNOEA [None]
